FAERS Safety Report 5008865-X (Version None)
Quarter: 2006Q2

REPORT INFORMATION
  Report Type: 
  Country: None (occurrence: None)
  Receive Date: 20060518
  Receipt Date: 20060511
  Transmission Date: 20061013
  Serious: Yes (Other)
  Sender: FDA-Public Use
  Company Number: 2006062805

PATIENT
  Age: 9 Year
  Sex: Male

DRUGS (3)
  1. BENADRYL [Suspect]
     Indication: RASH
     Dosage: 1 1/2 TEASPOON ONCE, ORAL
     Route: 048
     Dates: start: 20060511, end: 20060511
  2. BENADRYL [Suspect]
     Indication: URTICARIA
     Dosage: UNSPECIFIED, ALL DAY, TOPICAL
     Route: 061
  3. HYDROCORTISONE [Suspect]
     Indication: URTICARIA
     Dosage: UNSPECIFIED, TOPICAL
     Route: 061

REACTIONS (4)
  - FALL [None]
  - LIP DISCOLOURATION [None]
  - LOSS OF CONSCIOUSNESS [None]
  - SWELLING [None]
